FAERS Safety Report 8646664 (Version 4)
Quarter: 2012Q4

REPORT INFORMATION
  Report Type: 
  Country: DE (occurrence: DE)
  Receive Date: 20120703
  Receipt Date: 20121116
  Transmission Date: 20130627
  Serious: Yes (Hospitalization)
  Sender: FDA-Public Use
  Company Number: DE-BIOGENIDEC-2012BI022343

PATIENT
  Age: 35 Year
  Sex: Female

DRUGS (3)
  1. TYSABRI [Suspect]
     Indication: RELAPSING-REMITTING MULTIPLE SCLEROSIS
     Route: 042
     Dates: start: 20110121
  2. FUROSEMIDE [Concomitant]
     Indication: OEDEMA PERIPHERAL
     Dates: start: 20100318
  3. DIURETIC [Concomitant]
     Indication: OEDEMA PERIPHERAL
     Dates: start: 20120503

REACTIONS (3)
  - Gastritis [Recovered/Resolved]
  - Hypokalaemia [Recovered/Resolved]
  - Oedema peripheral [Recovered/Resolved]
